FAERS Safety Report 7986329-9 (Version None)
Quarter: 2011Q4

REPORT INFORMATION
  Report Type: 
  Country: None (occurrence: None)
  Receive Date: 20111216
  Receipt Date: 20110725
  Transmission Date: 20120403
  Serious: Yes (Other)
  Sender: FDA-Public Use
  Company Number: US-BRISTOL-MYERS SQUIBB COMPANY-15890593

PATIENT
  Age: 24 Year
  Sex: Male

DRUGS (4)
  1. ABILIFY [Suspect]
     Indication: ATTENTION DEFICIT/HYPERACTIVITY DISORDER
     Dosage: 1 DF=1 ABILIFY TABS 10 MG
  2. ADDERALL 5 [Concomitant]
  3. ABILIFY [Suspect]
     Indication: SCHIZOAFFECTIVE DISORDER
     Dosage: 1 DF=1 ABILIFY TABS 10 MG
  4. PAXIL [Concomitant]

REACTIONS (1)
  - CONVULSION [None]
